FAERS Safety Report 8456631-5 (Version None)
Quarter: 2012Q2

REPORT INFORMATION
  Report Type: 
  Country: None (occurrence: None)
  Receive Date: 20120621
  Receipt Date: 20120613
  Transmission Date: 20120825
  Serious: Yes (Other)
  Sender: FDA-Public Use
  Company Number: US-ROCHE-731944

PATIENT
  Sex: Female
  Weight: 62.652 kg

DRUGS (1)
  1. ACCUTANE [Suspect]
     Indication: ACNE CYSTIC
     Route: 065

REACTIONS (4)
  - LIP DRY [None]
  - ENTEROCOLONIC FISTULA [None]
  - CROHN'S DISEASE [None]
  - DRY SKIN [None]
